FAERS Safety Report 9305823 (Version 3)
Quarter: 2013Q3

REPORT INFORMATION
  Report Type: Spontaneous
  Country: US (occurrence: US)
  Receive Date: 20130523
  Receipt Date: 20130910
  Transmission Date: 20140515
  Serious: No
  Sender: FDA-Public Use
  Company Number: US-PFIZER INC-2013153006

PATIENT
  Age: 47 Year
  Sex: Female

DRUGS (6)
  1. CLINDAMYCIN PHOSPHATE [Suspect]
     Dosage: UNK, 2X/DAY
  2. CLINDAMYCIN PHOSPHATE [Suspect]
     Dosage: UNK
  3. CLINDAMYCIN PHOSPHATE [Suspect]
     Dosage: UNK
  4. LO LOESTRIN FE [Concomitant]
     Dosage: UNK, 1X/DAY
     Route: 048
  5. METFORMIN [Concomitant]
     Dosage: 500 MG, 2X/DAY
  6. KETOCONAZOLE [Concomitant]
     Dosage: UNK
     Route: 061

REACTIONS (4)
  - Poor quality drug administered [Unknown]
  - Skin burning sensation [Unknown]
  - Skin exfoliation [Unknown]
  - Product odour abnormal [Unknown]
